FAERS Safety Report 20646525 (Version 1)
Quarter: 2022Q1

REPORT INFORMATION
  Report Type: Spontaneous
  Country: CN (occurrence: CN)
  Receive Date: 20220329
  Receipt Date: 20220329
  Transmission Date: 20220424
  Serious: Yes (Other)
  Sender: FDA-Public Use
  Company Number: CN-SA-SAC20220325001433

PATIENT
  Age: 60 Year
  Sex: Male

DRUGS (2)
  1. ELOXATIN [Suspect]
     Active Substance: OXALIPLATIN
     Indication: Chemotherapy
     Dosage: 200 MG, 1X
     Route: 041
     Dates: start: 20220120, end: 20220120
  2. GIMERACIL\OTERACIL\TEGAFUR [Suspect]
     Active Substance: GIMERACIL\OTERACIL\TEGAFUR
     Indication: Chemotherapy
     Dosage: 40 MG, QD
     Route: 048
     Dates: start: 20220120, end: 20220126

REACTIONS (3)
  - Cardiotoxicity [Recovering/Resolving]
  - Leukopenia [Recovering/Resolving]
  - Granulocytopenia [Recovering/Resolving]

NARRATIVE: CASE EVENT DATE: 20220209
